FAERS Safety Report 10307779 (Version 1)
Quarter: 2014Q3

REPORT INFORMATION
  Report Type: Other
  Country: GB (occurrence: GB)
  Receive Date: 20140716
  Receipt Date: 20140716
  Transmission Date: 20150326
  Serious: Yes (Hospitalization, Other)
  Sender: FDA-Public Use
  Company Number: GB-TARO PHARMACEUTICALS U.S.A., INC-2014SUN01589

PATIENT
  Age: 70 Year
  Sex: Male
  Weight: 65 kg

DRUGS (2)
  1. WARFARIN [Suspect]
     Active Substance: WARFARIN
     Indication: PORTAL VEIN THROMBOSIS
     Dosage: 4 MG, QD
     Route: 048
  2. DANAZOL. [Suspect]
     Active Substance: DANAZOL
     Indication: MYELOFIBROSIS
     Dosage: 200 MG, QD
     Route: 048
     Dates: start: 20140527

REACTIONS (2)
  - International normalised ratio increased [Recovered/Resolved]
  - Labelled drug-drug interaction medication error [Unknown]

NARRATIVE: CASE EVENT DATE: 20140615
